FAERS Safety Report 13177852 (Version 1)
Quarter: 2017Q1

REPORT INFORMATION
  Report Type: Spontaneous
  Country: US (occurrence: US)
  Receive Date: 20170201
  Receipt Date: 20170201
  Transmission Date: 20170428
  Serious: Yes (Life-Threatening, Hospitalization)
  Sender: FDA-Public Use
  Company Number: PHHY2017US011394

PATIENT
  Age: 31 Year
  Sex: Male

DRUGS (4)
  1. OXALIPLATIN. [Suspect]
     Active Substance: OXALIPLATIN
     Indication: HEPATOCELLULAR CARCINOMA
     Dosage: 100 MG/M2, QW2
     Route: 065
  2. CITRULLINE [Concomitant]
     Active Substance: CITRULLINE
     Indication: METABOLIC DISORDER
     Dosage: 5.5 G/M2, QD (IN 3 DIVIDED DOSE)
     Route: 065
  3. SODIUM BENZOATE [Concomitant]
     Active Substance: SODIUM BENZOATE
     Indication: METABOLIC DISORDER
     Dosage: 5.5 G/M2, QD (IN 3DIVIDED DOSES)
     Route: 065
  4. GEMCITABINE [Suspect]
     Active Substance: GEMCITABINE\GEMCITABINE HYDROCHLORIDE
     Indication: HEPATOCELLULAR CARCINOMA
     Dosage: 1000 MG/M2, QW2
     Route: 065

REACTIONS (3)
  - Hypersensitivity [Recovered/Resolved]
  - Hyperammonaemic encephalopathy [Unknown]
  - Hyperammonaemic encephalopathy [Recovered/Resolved]
